FAERS Safety Report 7904931-7 (Version None)
Quarter: 2011Q4

REPORT INFORMATION
  Report Type: 
  Country: None (occurrence: None)
  Receive Date: 20111109
  Receipt Date: 20111102
  Transmission Date: 20120403
  Serious: Yes (Hospitalization)
  Sender: FDA-Public Use
  Company Number: PHHY2011AR097230

PATIENT
  Sex: Female

DRUGS (2)
  1. CLONAZEPAM [Concomitant]
     Dosage: UNK
  2. DIOVAN [Suspect]
     Indication: BLOOD PRESSURE
     Dosage: 160 MG DAILY

REACTIONS (1)
  - CHOLELITHIASIS [None]
